FAERS Safety Report 4382000-3 (Version None)
Quarter: 2004Q2

REPORT INFORMATION
  Report Type: 
  Country: None (occurrence: None)
  Receive Date: 20040615
  Receipt Date: 20040601
  Transmission Date: 20050107
  Serious: Yes (Hospitalization)
  Sender: FDA-Public Use
  Company Number: CPVP2004FRA5169

PATIENT
  Age: 60 Year
  Sex: Male

DRUGS (1)
  1. MIDODRINE HCL [Suspect]
     Indication: ORTHOSTATIC HYPOTENSION
     Dosage: 10 MG
     Route: 048

REACTIONS (1)
  - CEREBRAL HAEMORRHAGE [None]
